FAERS Safety Report 8187709-1 (Version None)
Quarter: 2012Q1

REPORT INFORMATION
  Report Type: 
  Country: None (occurrence: None)
  Receive Date: 20120306
  Receipt Date: 20111222
  Transmission Date: 20120608
  Serious: No
  Sender: FDA-Public Use
  Company Number: US-GLAXOSMITHKLINE-A0959346A

PATIENT
  Age: 29 Year
  Sex: Female

DRUGS (2)
  1. LAMICTAL [Concomitant]
     Dosage: 200MG UNKNOWN
     Route: 065
  2. LAMICTAL [Suspect]
     Dosage: 200MG UNKNOWN
     Route: 065
     Dates: start: 20111116

REACTIONS (4)
  - HYPERSENSITIVITY [None]
  - APHTHOUS STOMATITIS [None]
  - ORAL MUCOSAL ERUPTION [None]
  - DRUG PRESCRIBING ERROR [None]
